FAERS Safety Report 24580371 (Version 1)
Quarter: 2024Q4

REPORT INFORMATION
  Report Type: Spontaneous
  Country: CN (occurrence: CN)
  Receive Date: 20241105
  Receipt Date: 20241105
  Transmission Date: 20250114
  Serious: Yes (Hospitalization)
  Sender: BAXTER
  Company Number: None

PATIENT
  Age: 67 Year
  Sex: Male

DRUGS (9)
  1. GLYCERIN\MEDIUM-CHAIN TRIGLYCERIDES\PHOSPHOLIPID\SOYBEAN OIL [Suspect]
     Active Substance: GLYCERIN\MEDIUM-CHAIN TRIGLYCERIDES\PHOSPHOLIPID\SOYBEAN OIL
     Indication: Nutritional supplementation
     Dosage: 250.000000 ML ONCE DAILY
     Route: 041
     Dates: start: 20240926, end: 20240926
  2. AMINO ACIDS, SOURCE UNSPECIFIED [Suspect]
     Active Substance: AMINO ACIDS, SOURCE UNSPECIFIED
     Indication: Nutritional supplementation
     Dosage: 850 MILLILITER ONCE IN ONE DAY
     Route: 041
     Dates: start: 20240926, end: 20240926
  3. VITAMINS [Suspect]
     Active Substance: VITAMINS
     Indication: Nutritional supplementation
     Dosage: 5 MILLILITER ONCE IN ONE DAY
     Route: 041
     Dates: start: 20240926, end: 20240926
  4. POTASSIUM CHLORIDE [Suspect]
     Active Substance: POTASSIUM CHLORIDE
     Indication: Electrolyte substitution therapy
     Dosage: 40 MILLILITER ONCE IN ONE DAY
     Route: 041
     Dates: start: 20240926, end: 20240926
  5. POTASSIUM CHLORIDE [Suspect]
     Active Substance: POTASSIUM CHLORIDE
     Dosage: AT 11:20, 10 ML AT AN UNSPECIFIED FREQUENCY
     Route: 041
     Dates: start: 20240926
  6. DEXTROSE\SODIUM CHLORIDE [Suspect]
     Active Substance: DEXTROSE\SODIUM CHLORIDE
     Indication: Nutritional supplementation
     Dosage: 500 MILLILITER ONCE IN ONE DAY
     Route: 041
     Dates: start: 20240926, end: 20240926
  7. DEXTROSE [Suspect]
     Active Substance: DEXTROSE MONOHYDRATE
     Indication: Nutritional supplementation
     Dosage: 400 MILLILITER ONCE IN ONE DAY
     Route: 041
     Dates: start: 20240926, end: 20240926
  8. DEXTROSE [Suspect]
     Active Substance: DEXTROSE MONOHYDRATE
     Dosage: AT 11:20, 500 ML 10% GLUCOSE
     Route: 041
     Dates: start: 20240926
  9. INSULIN HUMAN [Suspect]
     Active Substance: INSULIN HUMAN
     Indication: Nutritional supplementation
     Dosage: 22 IU ONCE IN ONE DAY
     Route: 041
     Dates: start: 20240926, end: 20240926

REACTIONS (3)
  - Obstructive airways disorder [Recovering/Resolving]
  - Pruritus [Recovering/Resolving]
  - Chest discomfort [Recovered/Resolved]

NARRATIVE: CASE EVENT DATE: 20240926
